FAERS Safety Report 21361785 (Version 1)
Quarter: 2022Q3

REPORT INFORMATION
  Report Type: Spontaneous
  Country: US (occurrence: None)
  Receive Date: 20220921
  Receipt Date: 20220921
  Transmission Date: 20221027
  Serious: Yes (Other)
  Sender: FDA-Public Use
  Company Number: None

PATIENT
  Sex: Female

DRUGS (5)
  1. HUMIRA [Suspect]
     Active Substance: ADALIMUMAB
     Indication: Juvenile idiopathic arthritis
     Dosage: OTHER QUANTITY : 40/0.4 MG/ML;?FREQUENCY : WEEKLY;?
     Route: 058
     Dates: start: 20220225
  2. AZITHROMYCIN [Concomitant]
     Active Substance: AZITHROMYCIN
  3. LEFLUNOMIDE [Concomitant]
     Active Substance: LEFLUNOMIDE
  4. TRETINOIN CRE 0.1% [Concomitant]
  5. TRIAMCINOLON CRE 0.1% [Concomitant]

REACTIONS (2)
  - Surgery [None]
  - Therapy interrupted [None]
